FAERS Safety Report 5325570-0 (Version None)
Quarter: 2007Q2

REPORT INFORMATION
  Report Type: 
  Country: None (occurrence: None)
  Receive Date: 20070515
  Receipt Date: 20070509
  Transmission Date: 20071010
  Serious: Yes (Other)
  Sender: FDA-Public Use
  Company Number: GR-BOEHRINGER INGELHEIM PHARMACEUTICALS, INC.-2007-DE-02800GB

PATIENT
  Age: 82 Year
  Sex: Male

DRUGS (10)
  1. ATROVENT [Suspect]
     Indication: RESPIRATORY TRACT INFECTION
     Dosage: STRENGTH: 500/2 MCG/ML
     Route: 055
     Dates: start: 20070507, end: 20070509
  2. ATROVENT [Suspect]
     Indication: CHEST PAIN
  3. ATROVENT [Suspect]
     Indication: CHRONIC OBSTRUCTIVE PULMONARY DISEASE
  4. CIPROFLOXACIN HYDROCHLORIDE [Concomitant]
  5. ZITHROMAX [Concomitant]
  6. ISCOVER [Concomitant]
  7. LORDIN [Concomitant]
  8. PROCORALAN [Concomitant]
  9. NITRONG [Concomitant]
     Route: 062
  10. COAPROVEL [Concomitant]
     Dosage: STRENGTH: (150+12,5) MG
     Route: 048

REACTIONS (4)
  - COUGH [None]
  - DISCOMFORT [None]
  - DYSPNOEA [None]
  - TREMOR [None]
